FAERS Safety Report 8245523-2 (Version None)
Quarter: 2012Q1

REPORT INFORMATION
  Report Type: 
  Country: None (occurrence: None)
  Receive Date: 20120329
  Receipt Date: 20120319
  Transmission Date: 20120608
  Serious: Yes (Hospitalization)
  Sender: FDA-Public Use
  Company Number: US-RB-038477-12

PATIENT
  Age: 70 Year
  Sex: Male

DRUGS (3)
  1. BUPRENORPHINE [Suspect]
     Indication: DRUG DEPENDENCE
     Dosage: DOSING DETAILS UNKNOWN
     Route: 030
     Dates: end: 20110501
  2. BLOOD PRESSURE PILL [Concomitant]
     Indication: HYPERTENSION
     Dosage: DOSING DETAILS UNKNOWN
     Route: 065
  3. BUPRENEX [Suspect]
     Indication: DRUG DEPENDENCE
     Dosage: DOSING DETAILS UNKNOWN
     Route: 030
     Dates: end: 20110501

REACTIONS (3)
  - OFF LABEL USE [None]
  - OSTEOARTHRITIS [None]
  - ARTHRITIS INFECTIVE [None]
